FAERS Safety Report 7116277-8 (Version None)
Quarter: 2010Q4

REPORT INFORMATION
  Report Type: 
  Country: None (occurrence: None)
  Receive Date: 20101122
  Receipt Date: 20101113
  Transmission Date: 20110411
  Serious: Yes (Hospitalization)
  Sender: FDA-Public Use
  Company Number: CA-JNJFOC-20100507296

PATIENT
  Sex: Female
  Weight: 65.77 kg

DRUGS (7)
  1. REMICADE [Suspect]
     Indication: CROHN'S DISEASE
     Route: 042
  2. PALAFER [Concomitant]
     Route: 048
  3. BENADRYL [Concomitant]
     Indication: PREMEDICATION
     Route: 042
  4. TYLENOL (CAPLET) [Concomitant]
     Indication: PREMEDICATION
     Route: 048
  5. HYDROCORTISONE [Concomitant]
     Indication: PREMEDICATION
     Route: 042
  6. GRAVOL TAB [Concomitant]
     Indication: PREMEDICATION
     Route: 042
  7. CORTENEMA [Concomitant]

REACTIONS (3)
  - PNEUMONIA [None]
  - POOR VENOUS ACCESS [None]
  - RECTAL HAEMORRHAGE [None]
